FAERS Safety Report 23110589 (Version 2)
Quarter: 2023Q4

REPORT INFORMATION
  Report Type: Spontaneous
  Country: US (occurrence: US)
  Receive Date: 20231026
  Receipt Date: 20231110
  Transmission Date: 20240110
  Serious: Yes (Hospitalization)
  Sender: FDA-Public Use
  Company Number: US-PARI RESPIRATORY EQUIPMENT, INC.-2023PAR00045

PATIENT
  Age: 54 Year
  Sex: Male
  Weight: 107.03 kg

DRUGS (5)
  1. KITABIS PAK [Suspect]
     Active Substance: TOBRAMYCIN
     Indication: Bronchiectasis
     Dosage: 1 AMPULE (300 MG/5 ML) VIA NEBULIZER, 2X/DAY FOR 28 DAYS
     Dates: start: 202309
  2. KITABIS PAK [Suspect]
     Active Substance: TOBRAMYCIN
     Indication: Infective exacerbation of bronchiectasis
  3. TYVASO [Concomitant]
     Active Substance: TREPROSTINIL
     Dosage: UNK
     Dates: end: 202309
  4. TYVASO [Concomitant]
     Active Substance: TREPROSTINIL
     Dosage: ^MAINTENANCE DOSE^
     Dates: start: 20231001, end: 20231004
  5. TADALAFIL [Concomitant]
     Active Substance: TADALAFIL

REACTIONS (2)
  - Pneumonia [Recovering/Resolving]
  - Off label use [Not Recovered/Not Resolved]

NARRATIVE: CASE EVENT DATE: 20230901
